FAERS Safety Report 10179183 (Version 3)
Quarter: 2014Q3

REPORT INFORMATION
  Report Type: Spontaneous
  Country: US (occurrence: US)
  Receive Date: 20140519
  Receipt Date: 20140711
  Transmission Date: 20150326
  Serious: Yes (Hospitalization)
  Sender: FDA-Public Use
  Company Number: US-JNJFOC-20140502992

PATIENT
  Age: 46 Year
  Sex: Male
  Weight: 108.86 kg

DRUGS (7)
  1. SOMA [Concomitant]
     Active Substance: CARISOPRODOL
     Indication: COMPLEX REGIONAL PAIN SYNDROME
     Route: 065
  2. DURAGESIC [Suspect]
     Active Substance: FENTANYL
     Indication: COMPLEX REGIONAL PAIN SYNDROME
     Route: 062
  3. OXYCODONE [Concomitant]
     Active Substance: OXYCODONE
     Indication: PAIN
     Dosage: 5-6 TIMES DAILY
     Route: 048
     Dates: start: 2003
  4. DURAGESIC [Suspect]
     Active Substance: FENTANYL
     Indication: COMPLEX REGIONAL PAIN SYNDROME
     Route: 062
     Dates: start: 2005
  5. DRONABINOL. [Concomitant]
     Active Substance: DRONABINOL
     Indication: SUBSTANCE USE
     Route: 048
     Dates: start: 201304
  6. ROXICODONE [Concomitant]
     Active Substance: OXYCODONE HYDROCHLORIDE
     Indication: COMPLEX REGIONAL PAIN SYNDROME
     Route: 065
  7. KLODIN [Concomitant]
     Indication: COMPLEX REGIONAL PAIN SYNDROME
     Route: 065

REACTIONS (13)
  - Drug administered at inappropriate site [Unknown]
  - Surgery [Unknown]
  - Wrong technique in drug usage process [Recovered/Resolved]
  - Muscle spasms [Recovering/Resolving]
  - Product quality issue [Unknown]
  - Product adhesion issue [Unknown]
  - Pain [Recovered/Resolved]
  - Migraine [Not Recovered/Not Resolved]
  - Inappropriate schedule of drug administration [Recovered/Resolved]
  - Incorrect product storage [Unknown]
  - Poor quality drug administered [Unknown]
  - Hyperhidrosis [Not Recovered/Not Resolved]
  - Product outer packaging issue [Unknown]

NARRATIVE: CASE EVENT DATE: 2005
